FAERS Safety Report 11878179 (Version 1)
Quarter: 2015Q4

REPORT INFORMATION
  Report Type: Spontaneous
  Country: US (occurrence: None)
  Receive Date: 20151229
  Receipt Date: 20151229
  Transmission Date: 20160305
  Serious: No
  Sender: FDA-Public Use
  Company Number: None

PATIENT
  Age: 66 Year
  Sex: Female

DRUGS (8)
  1. SIMVASTATIN. [Concomitant]
     Active Substance: SIMVASTATIN
  2. OXYCONTIN [Concomitant]
     Active Substance: OXYCODONE HYDROCHLORIDE
  3. CLONAZEPAM. [Concomitant]
     Active Substance: CLONAZEPAM
  4. LEVOXYL [Concomitant]
     Active Substance: LEVOTHYROXINE SODIUM
  5. WELLBUTRIN [Concomitant]
     Active Substance: BUPROPION HYDROCHLORIDE
  6. GLEEVEC [Suspect]
     Active Substance: IMATINIB MESYLATE
     Indication: HYPOTHYROIDISM
     Route: 048
     Dates: start: 201510
  7. ATENOLOL. [Concomitant]
     Active Substance: ATENOLOL
  8. PANCREATIN POW [Concomitant]

REACTIONS (2)
  - Eye swelling [None]
  - Vomiting [None]

NARRATIVE: CASE EVENT DATE: 201512
